FAERS Safety Report 19979934 (Version 4)
Quarter: 2022Q2

REPORT INFORMATION
  Report Type: Spontaneous
  Country: US (occurrence: US)
  Receive Date: 20211021
  Receipt Date: 20220509
  Transmission Date: 20220720
  Serious: No
  Sender: FDA-Public Use
  Company Number: US-AMGEN-USASP2021161796

PATIENT
  Age: 64 Year
  Sex: Male

DRUGS (2)
  1. AIMOVIG [Suspect]
     Active Substance: ERENUMAB-AOOE
     Indication: Typical aura without headache
     Dosage: 70 MILLIGRAM, QMO
     Route: 065
     Dates: start: 20211006
  2. AIMOVIG [Suspect]
     Active Substance: ERENUMAB-AOOE
     Indication: Migraine prophylaxis
     Dosage: 140 MILLIGRAM, QMO
     Route: 065
     Dates: start: 20220420

REACTIONS (2)
  - Therapeutic product effect delayed [Unknown]
  - Migraine [Unknown]

NARRATIVE: CASE EVENT DATE: 20210101
